FAERS Safety Report 18927735 (Version 1)
Quarter: 2021Q1

REPORT INFORMATION
  Report Type: Spontaneous
  Country: US (occurrence: US)
  Receive Date: 20210222
  Receipt Date: 20210222
  Transmission Date: 20210420
  Serious: Yes (Hospitalization)
  Sender: FDA-Public Use
  Company Number: None

PATIENT
  Age: 57 Year
  Sex: Male

DRUGS (1)
  1. HUMIRA [Suspect]
     Active Substance: ADALIMUMAB
     Indication: PSORIASIS
     Dosage: OTHER FREQUENCY:STARTED DO;?
     Route: 058
     Dates: start: 20210219

REACTIONS (2)
  - Rash [None]
  - Infection [None]

NARRATIVE: CASE EVENT DATE: 20210219
